FAERS Safety Report 17008358 (Version 35)
Quarter: 2025Q2

REPORT INFORMATION
  Report Type: Report from Study
  Country: US (occurrence: US)
  Receive Date: 20191108
  Receipt Date: 20250527
  Transmission Date: 20250716
  Serious: Yes (Hospitalization, Other)
  Sender: TAKEDA
  Company Number: US-SHIRE-US201937990

PATIENT
  Age: 65 Year
  Sex: Female
  Weight: 60 kg

DRUGS (35)
  1. .ALPHA.1-PROTEINASE INHIBITOR HUMAN [Suspect]
     Active Substance: .ALPHA.1-PROTEINASE INHIBITOR HUMAN
     Indication: Alpha-1 antitrypsin deficiency
     Dosage: UNK UNK, 1/WEEK
     Dates: start: 20171016
  2. .ALPHA.1-PROTEINASE INHIBITOR HUMAN [Suspect]
     Active Substance: .ALPHA.1-PROTEINASE INHIBITOR HUMAN
     Indication: Chronic obstructive pulmonary disease
     Dosage: UNK UNK, 1/WEEK
     Dates: start: 20171018
  3. .ALPHA.1-PROTEINASE INHIBITOR HUMAN [Suspect]
     Active Substance: .ALPHA.1-PROTEINASE INHIBITOR HUMAN
     Dosage: 60 MILLIGRAM/KILOGRAM, 1/WEEK
  4. DIPHENHYDRAMINE [Concomitant]
     Active Substance: DIPHENHYDRAMINE
  5. HEPARIN [Concomitant]
     Active Substance: HEPARIN SODIUM
  6. LIDOCAINE [Concomitant]
     Active Substance: LIDOCAINE
  7. SODIUM CHLORIDE [Concomitant]
     Active Substance: SODIUM CHLORIDE
  8. EPINEPHRINE [Concomitant]
     Active Substance: EPINEPHRINE
  9. MAXITROL [Concomitant]
     Active Substance: DEXAMETHASONE\NEOMYCIN SULFATE\POLYMYXIN B SULFATE
  10. LISINOPRIL [Concomitant]
     Active Substance: LISINOPRIL
  11. LUBIPROSTONE [Concomitant]
     Active Substance: LUBIPROSTONE
  12. OMEPRAZOLE [Concomitant]
     Active Substance: OMEPRAZOLE
  13. OXYGEN [Concomitant]
     Active Substance: OXYGEN
  14. ESCITALOPRAM [Concomitant]
     Active Substance: ESCITALOPRAM OXALATE
  15. ATORVASTATIN [Concomitant]
     Active Substance: ATORVASTATIN
  16. ESCITALOPRAM OXALATE [Concomitant]
     Active Substance: ESCITALOPRAM OXALATE
  17. ATORVASTATIN CALCIUM [Concomitant]
     Active Substance: ATORVASTATIN CALCIUM
  18. FLUCELVAX QUADRIVALENT 2017/2018 (INFLUENZA A VIRUS A/DARWIN/11/2021 ( [Concomitant]
     Active Substance: INFLUENZA A VIRUS A/DARWIN/11/2021 (H3N2) ANTIGEN (MDCK CELL DERIVED, PROPIOLACTONE INACTIVATED)\INF
  19. FLUARIX QUADRIVALENT 2015/2016 [Concomitant]
     Active Substance: INFLUENZA A VIRUS A/CHRISTCHURCH/16/2010 NIB-74XP (H1N1) ANTIGEN (FORMALDEHYDE INACTIVATED)\INFLUENZ
  20. ASPIRIN [Concomitant]
     Active Substance: ASPIRIN
  21. FOLIC ACID [Concomitant]
     Active Substance: FOLIC ACID
  22. IBUPROFEN [Concomitant]
     Active Substance: IBUPROFEN
  23. NORTRIPTYLINE [Concomitant]
     Active Substance: NORTRIPTYLINE
  24. CALCIUM [Concomitant]
     Active Substance: CALCIUM
  25. ACETAMINOPHEN [Concomitant]
     Active Substance: ACETAMINOPHEN
  26. HYDROCODONE [Concomitant]
     Active Substance: HYDROCODONE
  27. SPIRIVA RESPIMAT [Concomitant]
     Active Substance: TIOTROPIUM BROMIDE
  28. SYSTANE (HYPROMELLOSE 2910 (4000 MPA.S)) [Concomitant]
     Active Substance: HYPROMELLOSE 2910 (4000 MPA.S)
  29. TIZANIDINE HYDROCHLORIDE [Concomitant]
     Active Substance: TIZANIDINE HYDROCHLORIDE
  30. TRAMADOL HCL [Concomitant]
     Active Substance: TRAMADOL HYDROCHLORIDE
  31. LEXAPRO [Concomitant]
     Active Substance: ESCITALOPRAM OXALATE
  32. DIPHENHYDRAMINE HYDROCHLORIDE [Concomitant]
     Active Substance: DIPHENHYDRAMINE HYDROCHLORIDE
  33. BENZONATATE [Concomitant]
     Active Substance: BENZONATATE
  34. OXYCODONE HYDROCHLORIDE [Concomitant]
     Active Substance: OXYCODONE HYDROCHLORIDE
  35. Senexon [Concomitant]

REACTIONS (41)
  - Syncope [Recovered/Resolved]
  - Kidney infection [Unknown]
  - Loss of consciousness [Unknown]
  - Influenza [Not Recovered/Not Resolved]
  - Pulmonary thrombosis [Unknown]
  - Chronic obstructive pulmonary disease [Unknown]
  - Proctalgia [Recovering/Resolving]
  - Constipation [Unknown]
  - Dyspnoea exertional [Unknown]
  - Musculoskeletal stiffness [Unknown]
  - Visual impairment [Unknown]
  - Road traffic accident [Unknown]
  - Stress fracture [Unknown]
  - Urinary tract infection [Unknown]
  - Tenderness [Unknown]
  - Respiratory tract infection [Unknown]
  - Post procedural infection [Unknown]
  - Catheter site pain [Unknown]
  - Eye disorder [Recovering/Resolving]
  - Arthralgia [Unknown]
  - Anxiety [Unknown]
  - Nasopharyngitis [Unknown]
  - Pain [Unknown]
  - COVID-19 [Unknown]
  - Poor venous access [Unknown]
  - Pyrexia [Unknown]
  - Device issue [Unknown]
  - Blood pressure decreased [Unknown]
  - Foot fracture [Unknown]
  - Bone contusion [Unknown]
  - Fall [Unknown]
  - Hypotension [Unknown]
  - Insurance issue [Unknown]
  - Product dose omission issue [Unknown]
  - Product use issue [Unknown]
  - Chest discomfort [Unknown]
  - Back pain [Unknown]
  - Dizziness [Recovered/Resolved]
  - Fatigue [Recovering/Resolving]
  - Dyspnoea [Unknown]
  - Nausea [Unknown]

NARRATIVE: CASE EVENT DATE: 20230819
